FAERS Safety Report 8393951-7 (Version None)
Quarter: 2012Q2

REPORT INFORMATION
  Report Type: 
  Country: None (occurrence: None)
  Receive Date: 20120517
  Receipt Date: 20120510
  Transmission Date: 20120825
  Serious: Yes (Other)
  Sender: FDA-Public Use
  Company Number: A0977149A

PATIENT

DRUGS (1)
  1. STRONTIUM CHLORIDE TOOTHPASTE (STRONTIUM CHLORIDE) [Suspect]
     Indication: DENTAL CARE
     Dosage: DENTAL
     Route: 004

REACTIONS (5)
  - NAUSEA [None]
  - BRONCHIAL IRRITATION [None]
  - ASTHMA [None]
  - ALLERGY TO CHEMICALS [None]
  - VOMITING [None]
